FAERS Safety Report 7753126-9 (Version None)
Quarter: 2011Q3

REPORT INFORMATION
  Report Type: 
  Country: None (occurrence: None)
  Receive Date: 20110915
  Receipt Date: 20110909
  Transmission Date: 20111222
  Serious: Yes (Other)
  Sender: FDA-Public Use
  Company Number: US-PFIZER INC-2008032668

PATIENT
  Sex: Female

DRUGS (5)
  1. WELLBUTRIN [Concomitant]
  2. INTERFERON [Concomitant]
  3. AMBIEN [Concomitant]
  4. CHANTIX [Suspect]
     Dosage: UNK
  5. RIBAVIRIN [Concomitant]

REACTIONS (9)
  - CHEST PAIN [None]
  - FALL [None]
  - NEOPLASM [None]
  - HEPATITIS [None]
  - WEIGHT INCREASED [None]
  - CHOLELITHIASIS [None]
  - CONFUSIONAL STATE [None]
  - FIBROMYALGIA [None]
  - FRACTURE [None]
